FAERS Safety Report 19761688 (Version 1)
Quarter: 2021Q3

REPORT INFORMATION
  Report Type: Spontaneous
  Country: US (occurrence: US)
  Receive Date: 20210829
  Receipt Date: 20210829
  Transmission Date: 20211014
  Serious: Yes (Disabling, Other)
  Sender: FDA-Public Use
  Company Number: None

PATIENT
  Age: 27 Year
  Sex: Female
  Weight: 56.25 kg

DRUGS (4)
  1. VITAMIN D [Concomitant]
     Active Substance: VITAMIN D NOS
  2. HYDROCORTISONE. [Suspect]
     Active Substance: HYDROCORTISONE
     Indication: ECZEMA
  3. MELATONIN [Concomitant]
     Active Substance: MELATONIN
  4. TAURINE [Concomitant]
     Active Substance: TAURINE

REACTIONS (9)
  - Self esteem decreased [None]
  - Skin odour abnormal [None]
  - Dependence [None]
  - Eczema [None]
  - Steroid withdrawal syndrome [None]
  - Pain [None]
  - Weight decreased [None]
  - Depression [None]
  - Body temperature fluctuation [None]

NARRATIVE: CASE EVENT DATE: 20200605
